FAERS Safety Report 18551861 (Version 1)
Quarter: 2020Q4

REPORT INFORMATION
  Report Type: Spontaneous
  Country: BE (occurrence: BE)
  Receive Date: 20201126
  Receipt Date: 20201126
  Transmission Date: 20210114
  Serious: Yes (Other)
  Sender: FDA-Public Use
  Company Number: BE-009507513-2010BEL006752

PATIENT
  Age: 64 Year
  Sex: Female
  Weight: 38 kg

DRUGS (5)
  1. CRESTOR [Concomitant]
     Active Substance: ROSUVASTATIN CALCIUM
     Indication: HYPERLIPIDAEMIA
     Dosage: 10 MILLIGRAM
     Route: 048
  2. KEYTRUDA [Suspect]
     Active Substance: PEMBROLIZUMAB
     Indication: NON-SMALL CELL LUNG CANCER
     Dosage: 200 MG||Q3W
     Route: 042
     Dates: start: 20200527, end: 20200708
  3. COVERSYL (PERINDOPRIL ARGININE) [Concomitant]
     Active Substance: PERINDOPRIL ARGININE
     Indication: HYPERTENSION
     Dosage: 2.5 MILLIGRAM
     Route: 048
  4. MEDROL [Concomitant]
     Active Substance: METHYLPREDNISOLONE
     Indication: METASTASES TO CENTRAL NERVOUS SYSTEM
     Dosage: 32 MG =} 4 MG
     Route: 048
     Dates: start: 20200719
  5. KEYTRUDA [Suspect]
     Active Substance: PEMBROLIZUMAB
     Dosage: 200 MG||Q3W
     Route: 042
     Dates: start: 20200731, end: 20201002

REACTIONS (3)
  - Immune-mediated hepatitis [Recovering/Resolving]
  - Tumour pseudoprogression [Recovered/Resolved]
  - Immune-mediated pancreatitis [Recovering/Resolving]

NARRATIVE: CASE EVENT DATE: 20200619
